FAERS Safety Report 9303276 (Version 2)
Quarter: 2013Q2

REPORT INFORMATION
  Report Type: Spontaneous
  Country: BE (occurrence: BE)
  Receive Date: 20130522
  Receipt Date: 20130529
  Transmission Date: 20140414
  Serious: Yes (Hospitalization, Other)
  Sender: FDA-Public Use
  Company Number: BE-TEVA-404945ISR

PATIENT
  Age: 58 Year
  Sex: Male
  Weight: 72 kg

DRUGS (2)
  1. EPOSIN [Suspect]
     Indication: SMALL CELL LUNG CANCER
     Route: 042
     Dates: start: 20130508, end: 20130508
  2. CARBOPLATINUM [Concomitant]
     Indication: SMALL CELL LUNG CANCER
     Dates: start: 20130508, end: 20130508

REACTIONS (1)
  - Epilepsy [Unknown]
